FAERS Safety Report 17872900 (Version 3)
Quarter: 2020Q2

REPORT INFORMATION
  Report Type: Spontaneous
  Country: JP (occurrence: JP)
  Receive Date: 20200608
  Receipt Date: 20200618
  Transmission Date: 20200714
  Serious: Yes (Other)
  Sender: FDA-Public Use
  Company Number: JP-BAUSCH-BL-2020-016272

PATIENT
  Age: 80 Year
  Sex: Male

DRUGS (8)
  1. 5-FU [Suspect]
     Active Substance: FLUOROURACIL
     Indication: OESOPHAGEAL ADENOCARCINOMA
     Route: 065
  2. DOCETAXEL. [Suspect]
     Active Substance: DOCETAXEL
     Dosage: CHEMOTHERAPY WAS RESTARTED ON 7TH DAY OF ILLNESS
     Route: 041
  3. CISPLATIN. [Suspect]
     Active Substance: CISPLATIN
     Indication: OESOPHAGEAL ADENOCARCINOMA
     Route: 065
  4. 5-FU [Suspect]
     Active Substance: FLUOROURACIL
     Dosage: CHEMOTHERAPY WAS RESTARTED ON 7TH DAY OF ILLNESS
     Route: 065
  5. SITAGLIPTIN [Concomitant]
     Active Substance: SITAGLIPTIN
     Indication: TYPE 2 DIABETES MELLITUS
     Route: 048
  6. DOCETAXEL. [Suspect]
     Active Substance: DOCETAXEL
     Indication: OESOPHAGEAL ADENOCARCINOMA
     Route: 041
  7. CISPLATIN. [Suspect]
     Active Substance: CISPLATIN
     Dosage: CHEMOTHERAPY WAS RESTARTED ON 7TH DAY OF ILLNESS
     Route: 065
  8. WARFARIN [Concomitant]
     Active Substance: WARFARIN
     Indication: ATRIAL FIBRILLATION
     Route: 048

REACTIONS (1)
  - Portal venous gas [Recovered/Resolved]
